FAERS Safety Report 10257605 (Version 2)
Quarter: 2014Q2

REPORT INFORMATION
  Report Type: Report from Study
  Country: FR (occurrence: FR)
  Receive Date: 20140625
  Receipt Date: 20140625
  Transmission Date: 20141212
  Serious: Yes (Hospitalization)
  Sender: FDA-Public Use
  Company Number: FR-NOVOPROD-290559

PATIENT
  Age: 13 Year
  Sex: Male
  Weight: 29 kg

DRUGS (4)
  1. NORDITROPIN SIMPLEXX 3.3 MG/ML [Suspect]
     Indication: PRODUCT USED FOR UNKNOWN INDICATION
     Dosage: 1.6 MG, QD
     Route: 058
     Dates: start: 20080214
  2. SYMBICORT [Concomitant]
     Indication: ASTHMA
     Dosage: 4 PUFF, QD
     Route: 048
  3. SINGULAIR                          /01362601/ [Concomitant]
     Dosage: 5 MG, QD
     Route: 065
  4. BRICANYL                           /00199202/ [Concomitant]
     Dosage: WHEN NEEDED
     Route: 065

REACTIONS (1)
  - Asthma [Recovered/Resolved]
